FAERS Safety Report 14416821 (Version 1)
Quarter: 2018Q1

REPORT INFORMATION
  Report Type: Spontaneous
  Country: US (occurrence: US)
  Receive Date: 20180119
  Receipt Date: 20180119
  Transmission Date: 20180509
  Serious: Yes (Hospitalization)
  Sender: FDA-Public Use
  Company Number: None

PATIENT
  Age: 71 Year
  Sex: Female

DRUGS (18)
  1. FENTANYL. [Concomitant]
     Active Substance: FENTANYL
  2. METRONIDAZOLE. [Concomitant]
     Active Substance: METRONIDAZOLE
  3. HYDROMORPHONE [Concomitant]
     Active Substance: HYDROMORPHONE
  4. CEFEPIME [Concomitant]
     Active Substance: CEFEPIME HYDROCHLORIDE
  5. MYCOPHENOLATE [Concomitant]
     Active Substance: MYCOPHENOLIC ACID
  6. GANCICLOVIR. [Concomitant]
     Active Substance: GANCICLOVIR
  7. ASPIRIN. [Concomitant]
     Active Substance: ASPIRIN
  8. LORAZAPAM [Concomitant]
     Active Substance: LORAZEPAM
  9. SENNA [Concomitant]
     Active Substance: SENNA LEAF\SENNOSIDES\SENNOSIDES A AND B
  10. DEXMEDETOMIDINE. [Suspect]
     Active Substance: DEXMEDETOMIDINE
     Indication: SEDATION
     Dosage: 0.2-0.6 MCG/KG/HR CONTINUOUS IV
     Route: 042
  11. ATROPINE. [Concomitant]
     Active Substance: ATROPINE
  12. METHYLPREDNISOLONE. [Concomitant]
     Active Substance: METHYLPREDNISOLONE
  13. VANCOMYCIN [Concomitant]
     Active Substance: VANCOMYCIN
  14. EPINEPHRINE. [Concomitant]
     Active Substance: EPINEPHRINE
  15. INSULIN ASPART [Concomitant]
     Active Substance: INSULIN ASPART
  16. TACROLIMUS. [Concomitant]
     Active Substance: TACROLIMUS
  17. ENOXAPARIN [Concomitant]
     Active Substance: ENOXAPARIN
  18. VASOPRESSIN. [Concomitant]
     Active Substance: VASOPRESSIN

REACTIONS (1)
  - Sinus arrest [None]

NARRATIVE: CASE EVENT DATE: 20170829
